FAERS Safety Report 7385887 (Version 2)
Quarter: 2013Q3

REPORT INFORMATION
  Report Type: Spontaneous
  Country: None (occurrence: None)
  Receive Date: 20100505
  Receipt Date: 20130708
  Transmission Date: 20140515
  Serious: Yes (Hospitalization)
  Sender: FDA-Public Use
  Company Number: AUR-APL-2010-00998

PATIENT
  Age: 58 Year
  Sex: Female
  Weight: 50.7 kg

DRUGS (1)
  1. PAROXETINE HYDROCHLORIDE [Suspect]
     Indication: PANIC DISORDER
     Route: 048
     Dates: start: 20091002, end: 20091008

REACTIONS (3)
  - Inguinal hernia [None]
  - Disease recurrence [None]
  - Refusal of treatment by patient [None]
